FAERS Safety Report 5625087-X (Version None)
Quarter: 2008Q1

REPORT INFORMATION
  Report Type: 
  Country: None (occurrence: None)
  Receive Date: 20080213
  Receipt Date: 20080204
  Transmission Date: 20080703
  Serious: Yes (Life-Threatening, Hospitalization)
  Sender: FDA-Public Use
  Company Number: DE-PFIZER INC-2008011227

PATIENT
  Sex: Male

DRUGS (27)
  1. NORVASC [Suspect]
     Indication: HYPERTENSION
     Route: 048
     Dates: start: 20040717, end: 20040809
  2. URBASON [Suspect]
     Route: 048
     Dates: start: 20040708, end: 20040805
  3. ACERCOMP [Suspect]
     Route: 048
     Dates: start: 20040717, end: 20040809
  4. NEBILET [Suspect]
     Route: 048
     Dates: start: 20040714, end: 20040814
  5. LOPIRIN [Suspect]
     Route: 048
     Dates: start: 20040714, end: 20040814
  6. PULMICORT [Suspect]
     Route: 055
     Dates: start: 20040717, end: 20040814
  7. PANTOZOL [Suspect]
     Route: 048
     Dates: start: 20040708, end: 20040814
  8. ASPIRIN [Suspect]
     Route: 048
     Dates: start: 20040717, end: 20040814
  9. FORADIL [Suspect]
     Route: 055
     Dates: start: 20040726, end: 20040814
  10. CLEXANE [Suspect]
     Route: 058
     Dates: start: 20040728, end: 20040806
  11. ACETYLCYSTEINE [Suspect]
     Route: 048
     Dates: start: 20040728, end: 20040814
  12. PARACODIN BITARTRATE TAB [Suspect]
     Route: 048
     Dates: start: 20040729, end: 20040807
  13. TOREM [Suspect]
     Route: 048
     Dates: start: 20040730, end: 20040809
  14. DICODID [Suspect]
     Route: 058
     Dates: start: 20040803, end: 20040803
  15. CEPHORAL [Suspect]
     Route: 048
     Dates: start: 20040803, end: 20040814
  16. POTASSIUM CHLORIDE [Suspect]
     Route: 048
     Dates: start: 20040804, end: 20040809
  17. ALDACTONE [Suspect]
     Route: 048
     Dates: start: 20040806, end: 20040809
  18. AMLODIPINE [Suspect]
     Indication: HYPERTENSION
     Route: 048
     Dates: start: 20040810, end: 20040814
  19. ATROVENT [Suspect]
     Route: 055
     Dates: start: 20040810, end: 20040814
  20. ALBUTEROL [Suspect]
     Route: 055
     Dates: start: 20040810, end: 20040814
  21. TORSEMIDE [Suspect]
     Route: 048
     Dates: start: 20040810, end: 20040814
  22. SPIRONOLACTONE [Suspect]
     Route: 048
     Dates: start: 20040810, end: 20040814
  23. LISINOPRIL AND HYDROCHLOROTHIAZIDE [Suspect]
     Route: 048
     Dates: start: 20040810, end: 20040814
  24. KALITRANS [Suspect]
     Route: 048
     Dates: start: 20040810, end: 20040815
  25. BERODUAL [Concomitant]
     Route: 055
     Dates: start: 20040717, end: 20040725
  26. TRAMAL [Concomitant]
     Route: 048
     Dates: start: 20040728, end: 20040728
  27. CEFTRIAXONE [Concomitant]
     Route: 042

REACTIONS (1)
  - TOXIC EPIDERMAL NECROLYSIS [None]
